FAERS Safety Report 15331159 (Version 2)
Quarter: 2019Q1

REPORT INFORMATION
  Report Type: Spontaneous
  Country: RU (occurrence: RU)
  Receive Date: 20180829
  Receipt Date: 20190329
  Transmission Date: 20190417
  Serious: Yes (Hospitalization, Other)
  Sender: FDA-Public Use
  Company Number: RU-ASTRAZENECA-2017SF33124

PATIENT
  Age: 87 Year
  Sex: Female
  Weight: 75 kg

DRUGS (13)
  1. BRILINTA [Suspect]
     Active Substance: TICAGRELOR
     Indication: MYOCARDIAL INFARCTION
     Route: 048
     Dates: start: 20170828
  2. PHYSIOTENS [Concomitant]
     Active Substance: MOXONIDINE
     Dosage: 0.2 MORNING AND 0.4 EVENING
  3. THERAFLEX [Concomitant]
     Active Substance: CHONDROITIN SULFATE A\GLUCOSAMINE
  4. EDARBI CLO [Concomitant]
     Dosage: 80 MG
  5. EGILOK [Concomitant]
     Active Substance: METOPROLOL TARTRATE
     Dosage: 12 MORNING AND 25 EVENING
  6. ATORIS [Concomitant]
     Active Substance: ATORVASTATIN CALCIUM
  7. GINKGO BILOBA [Concomitant]
     Active Substance: GINKGO
  8. NEBILET [Concomitant]
     Active Substance: NEBIVOLOL
  9. THROMBO ASS [Concomitant]
     Active Substance: ASPIRIN
  10. BRILINTA [Suspect]
     Active Substance: TICAGRELOR
     Indication: STENT PLACEMENT
     Route: 048
     Dates: start: 20170828
  11. LEVAMLODIPINE [Concomitant]
     Active Substance: LEVAMLODIPINE
     Dosage: 2.5-5 MG,
  12. HOMEOPATHIC NOS [Concomitant]
  13. NOLPAZA [Concomitant]
     Active Substance: PANTOPRAZOLE SODIUM

REACTIONS (7)
  - Off label use [Not Recovered/Not Resolved]
  - Blood pressure decreased [Recovered/Resolved]
  - Product use issue [Not Recovered/Not Resolved]
  - Contusion [Not Recovered/Not Resolved]
  - Blood viscosity increased [Not Recovered/Not Resolved]
  - Syncope [Recovered/Resolved]
  - Hypertension [Recovering/Resolving]

NARRATIVE: CASE EVENT DATE: 20170828
